FAERS Safety Report 12242372 (Version 1)
Quarter: 2016Q2

REPORT INFORMATION
  Report Type: Spontaneous
  Country: US (occurrence: US)
  Receive Date: 20160406
  Receipt Date: 20160406
  Transmission Date: 20160815
  Serious: No
  Sender: FDA-Public Use
  Company Number: US-PFIZER INC-2016156802

PATIENT
  Age: 57 Year
  Sex: Female
  Weight: 50.79 kg

DRUGS (1)
  1. GABAPENTIN. [Suspect]
     Active Substance: GABAPENTIN
     Indication: PAIN
     Dosage: 900 MG, DAILY (ONE IN THE MORNING AND TWO AT NIGHT)

REACTIONS (1)
  - Drug ineffective for unapproved indication [Unknown]
